FAERS Safety Report 4736909-9 (Version None)
Quarter: 2005Q3

REPORT INFORMATION
  Report Type: 
  Country: None (occurrence: None)
  Receive Date: 20050808
  Receipt Date: 20050801
  Transmission Date: 20060218
  Serious: Yes (Hospitalization)
  Sender: FDA-Public Use
  Company Number: US-SANOFI-SYNTHELABO-A03200502312

PATIENT
  Sex: Female
  Weight: 92.5 kg

DRUGS (11)
  1. ELOXATIN [Suspect]
     Indication: COLORECTAL CANCER METASTATIC
     Route: 042
     Dates: start: 20050725, end: 20050725
  2. AVASTIN [Suspect]
     Indication: COLORECTAL CANCER METASTATIC
     Route: 042
     Dates: start: 20050725, end: 20050725
  3. FLUOROURACIL [Suspect]
     Indication: COLORECTAL CANCER METASTATIC
     Dosage: UNK
     Route: 042
  4. LEUCOVORIN [Suspect]
     Indication: COLORECTAL CANCER METASTATIC
     Dosage: UNK
     Route: 042
  5. SYNTHROID [Concomitant]
     Route: 065
  6. HYDROCHLOROTHIAZIDE [Concomitant]
     Route: 065
  7. DILANTIN [Concomitant]
     Dosage: UNK
     Route: 065
  8. PROZAC [Concomitant]
     Dosage: UNK
     Route: 065
  9. PERCOCET [Concomitant]
     Dosage: UNK
     Route: 065
  10. XANAX [Concomitant]
     Dosage: UNK
     Route: 065
  11. ZOFRAN [Concomitant]
     Dosage: UNK
     Route: 065

REACTIONS (3)
  - DIALYSIS [None]
  - PYREXIA [None]
  - RENAL FAILURE [None]
